FAERS Safety Report 4895626-5 (Version None)
Quarter: 2006Q1

REPORT INFORMATION
  Report Type: 
  Country: None (occurrence: None)
  Receive Date: 20060125
  Receipt Date: 20060110
  Transmission Date: 20060701
  Serious: Yes (Other)
  Sender: FDA-Public Use
  Company Number: 2006VX000008

PATIENT
  Age: 77 Year
  Sex: Female

DRUGS (8)
  1. MESTINON [Suspect]
     Indication: QUADRIPLEGIA
     Dosage: 10 MG; TID; PO
     Route: 048
     Dates: start: 20051118
  2. RILUZOLE       (RILUZOLE) [Suspect]
     Indication: ENCEPHALITIS PERIAXIALIS DIFFUSA
     Dosage: 50 MG;BID;
     Dates: start: 20051117, end: 20051212
  3. MADOPAR (MADOPAR) [Suspect]
     Indication: PARKINSONISM
     Dosage: 12.5 MG;TID;PO
     Route: 048
     Dates: start: 20051125, end: 20051129
  4. BACOFEN [Concomitant]
  5. PRAVASTATIN SODIUM [Concomitant]
  6. CONDROSULF [Concomitant]
  7. ASPIRIN [Concomitant]
  8. CALCIMAGON-D3 [Concomitant]

REACTIONS (1)
  - HYPERTENSION [None]
